FAERS Safety Report 13422256 (Version 1)
Quarter: 2017Q2

REPORT INFORMATION
  Report Type: Spontaneous
  Country: US (occurrence: US)
  Receive Date: 20170407
  Receipt Date: 20170407
  Transmission Date: 20170830
  Serious: Yes (Life-Threatening, Hospitalization, Other)
  Sender: FDA-Public Use
  Company Number: None

PATIENT
  Age: 33 Year
  Sex: Male
  Weight: 78.75 kg

DRUGS (1)
  1. NEXIUM 24HR [Suspect]
     Active Substance: ESOMEPRAZOLE MAGNESIUM
     Indication: DYSPEPSIA
     Dosage: ?          QUANTITY:14 CAPSULE(S);?
     Route: 048
     Dates: start: 20161012, end: 20161015

REACTIONS (6)
  - Product label issue [None]
  - Tachycardia [None]
  - Middle insomnia [None]
  - Palpitations [None]
  - Chest pain [None]
  - Cardiac disorder [None]

NARRATIVE: CASE EVENT DATE: 20161015
